FAERS Safety Report 18345315 (Version 3)
Quarter: 2020Q4

REPORT INFORMATION
  Report Type: Spontaneous
  Country: US (occurrence: US)
  Receive Date: 20201005
  Receipt Date: 20201006
  Transmission Date: 20210114
  Serious: No
  Sender: FDA-Public Use
  Company Number: US-ALLERGAN-1952710US

PATIENT
  Sex: Female

DRUGS (4)
  1. MIRALAX [Concomitant]
     Active Substance: POLYETHYLENE GLYCOL 3350
     Indication: GASTROINTESTINAL MOTILITY DISORDER
  2. LINZESS [Suspect]
     Active Substance: LINACLOTIDE
     Indication: POST PROCEDURAL CONSTIPATION
     Dosage: 72 ?G
  3. LINZESS [Suspect]
     Active Substance: LINACLOTIDE
     Indication: POST PROCEDURAL CONSTIPATION
     Dosage: 145 ?G
  4. LINZESS [Suspect]
     Active Substance: LINACLOTIDE
     Indication: POST PROCEDURAL CONSTIPATION
     Dosage: 290 ?G, QD

REACTIONS (4)
  - Abdominal pain upper [Not Recovered/Not Resolved]
  - Abdominal distension [Not Recovered/Not Resolved]
  - Drug ineffective for unapproved indication [Unknown]
  - Off label use [Unknown]
